FAERS Safety Report 4314303-2 (Version None)
Quarter: 2004Q1

REPORT INFORMATION
  Report Type: 
  Country: None (occurrence: None)
  Receive Date: 20040309
  Receipt Date: 20040210
  Transmission Date: 20041129
  Serious: Yes (Life-Threatening, Hospitalization, Other)
  Sender: FDA-Public Use
  Company Number: WAES 0402GBR00126

PATIENT
  Age: 49 Year
  Sex: Male
  Weight: 73 kg

DRUGS (4)
  1. BENDROFLUMETHIAZIDE [Concomitant]
     Dates: start: 20031021
  2. ENALAPRIL MALEATE [Concomitant]
     Dates: start: 20030821
  3. PRAVASTATIN SODIUM [Concomitant]
     Dates: start: 20040102
  4. ZOCOR [Suspect]
     Indication: HYPERTRIGLYCERIDAEMIA
     Route: 048
     Dates: start: 20020724, end: 20040206

REACTIONS (4)
  - BIPOLAR DISORDER [None]
  - DEPRESSION [None]
  - INSOMNIA [None]
  - SUICIDE ATTEMPT [None]
